FAERS Safety Report 9839613 (Version 1)
Quarter: 2014Q1

REPORT INFORMATION
  Report Type: Spontaneous
  Country: JP (occurrence: JP)
  Receive Date: 20140124
  Receipt Date: 20140124
  Transmission Date: 20141002
  Serious: Yes (Hospitalization)
  Sender: FDA-Public Use
  Company Number: JP-BIOGENIDEC-2014BI006734

PATIENT
  Age: 54 Year
  Sex: Male

DRUGS (8)
  1. AVONEX [Suspect]
     Indication: RELAPSING-REMITTING MULTIPLE SCLEROSIS
     Route: 030
     Dates: start: 20090618
  2. SOLU MEDROL [Concomitant]
     Dates: start: 20091007
  3. BACLOFEN [Concomitant]
     Dates: start: 20090618
  4. UBRETID [Concomitant]
     Dates: start: 20090618
  5. CARBAMAZEPINE [Concomitant]
     Dates: start: 20090618
  6. HARNAL D [Concomitant]
     Dates: start: 20090618
  7. NAIXAN [Concomitant]
     Dates: start: 20090618
  8. DANTRIUM [Concomitant]
     Dates: start: 20090618

REACTIONS (3)
  - Infective aneurysm [Recovered/Resolved]
  - Bacterial infection [Recovered/Resolved]
  - Multiple sclerosis relapse [Recovered/Resolved]
